FAERS Safety Report 4468124-0 (Version None)
Quarter: 2004Q4

REPORT INFORMATION
  Report Type: 
  Country: None (occurrence: None)
  Receive Date: 20041004
  Receipt Date: 20040921
  Transmission Date: 20050328
  Serious: Yes (Hospitalization)
  Sender: FDA-Public Use
  Company Number: 2004069273

PATIENT
  Age: 49 Year
  Sex: Male

DRUGS (4)
  1. ATORVASTATIN CALCIUM [Suspect]
     Indication: HYPERCHOLESTEROLAEMIA
     Dosage: 80 MG (40 MG, 2 IN 1D)
     Dates: end: 20040801
  2. OMEPRAZOLE [Concomitant]
  3. BENFLUOREX (BENFLUOREX) [Concomitant]
  4. ISOSORBIDE DINITRATE [Concomitant]

REACTIONS (1)
  - HEPATITIS [None]
